FAERS Safety Report 13548429 (Version 1)
Quarter: 2017Q2

REPORT INFORMATION
  Report Type: Spontaneous
  Country: US (occurrence: US)
  Receive Date: 20170516
  Receipt Date: 20170516
  Transmission Date: 20170830
  Serious: No
  Sender: FDA-Public Use
  Company Number: US-JNJFOC-20170325792

PATIENT
  Sex: Male

DRUGS (4)
  1. MENS ROGAINE UNSCENTED FORMULA [Suspect]
     Active Substance: MINOXIDIL
     Indication: ALOPECIA
     Dosage: CAPFUL, 2X PER DAY
     Route: 061
     Dates: end: 20151101
  2. MENS ROGAINE EXTRA STRENGTH [Suspect]
     Active Substance: MINOXIDIL
     Route: 061
  3. MENS ROGAINE EXTRA STRENGTH [Suspect]
     Active Substance: MINOXIDIL
     Indication: ALOPECIA
     Dosage: CAPFUL, 2X PER DAY
     Route: 061
     Dates: end: 20151101
  4. MENS ROGAINE UNSCENTED FORMULA [Suspect]
     Active Substance: MINOXIDIL
     Route: 061

REACTIONS (10)
  - Dermatitis [Not Recovered/Not Resolved]
  - Incorrect drug administration duration [None]
  - Skin ulcer [Not Recovered/Not Resolved]
  - Overdose [Not Recovered/Not Resolved]
  - Intentional product use issue [None]
  - Skin exfoliation [Not Recovered/Not Resolved]
  - Erythema [Not Recovered/Not Resolved]
  - Injury [Not Recovered/Not Resolved]
  - Alopecia [Not Recovered/Not Resolved]
  - Scab [Not Recovered/Not Resolved]
